FAERS Safety Report 7489980-8 (Version None)
Quarter: 2011Q2

REPORT INFORMATION
  Report Type: 
  Country: None (occurrence: None)
  Receive Date: 20110517
  Receipt Date: 20110517
  Transmission Date: 20111010
  Serious: Yes (Life-Threatening, Hospitalization)
  Sender: FDA-Public Use
  Company Number: None

PATIENT
  Sex: Female
  Weight: 99.7913 kg

DRUGS (1)
  1. NABUMETONE [Suspect]
     Indication: BURSITIS
     Dosage: AS NEEDED FOR PAIN AT LEAST 2 TIMES A DAY
     Dates: start: 20050602

REACTIONS (2)
  - ABDOMINAL PAIN UPPER [None]
  - UNEVALUABLE EVENT [None]
